FAERS Safety Report 6904191-X (Version None)
Quarter: 2010Q3

REPORT INFORMATION
  Report Type: 
  Country: None (occurrence: None)
  Receive Date: 20100804
  Receipt Date: 20090325
  Transmission Date: 20110219
  Serious: Yes (Other)
  Sender: FDA-Public Use
  Company Number: US-PFIZER INC-2009190331

PATIENT
  Sex: Female
  Weight: 54.431 kg

DRUGS (12)
  1. LYRICA [Suspect]
     Indication: FIBROMYALGIA
     Dosage: FREQUENCY: 3X/DAY, EVERY DAY;
     Dates: start: 20080301
  2. LYRICA [Suspect]
     Indication: PAIN
  3. OXYCODONE [Concomitant]
     Dosage: UNK
  4. ULTRAM [Concomitant]
     Dosage: UNK
  5. SOMA [Concomitant]
     Dosage: UNK
  6. LISINOPRIL [Concomitant]
     Dosage: UNK
  7. VERAPAMIL [Concomitant]
     Dosage: UNK
  8. MULTI-VITAMINS [Concomitant]
     Dosage: UNK
  9. MINERALS NOS [Concomitant]
     Dosage: UNK
  10. LEVOTHYROXINE [Concomitant]
     Dosage: UNK
  11. FENTANYL [Concomitant]
     Dosage: UNK
     Route: 062
  12. SYNTHROID [Concomitant]
     Dosage: 50 MG, 1X/DAY

REACTIONS (15)
  - ABDOMINAL PAIN [None]
  - BLOOD PRESSURE INCREASED [None]
  - BURNING SENSATION [None]
  - CHILLS [None]
  - DECREASED APPETITE [None]
  - FATIGUE [None]
  - HYPERHIDROSIS [None]
  - INSOMNIA [None]
  - INTENTIONAL DRUG MISUSE [None]
  - OEDEMA PERIPHERAL [None]
  - PAIN [None]
  - PAIN IN EXTREMITY [None]
  - PYREXIA [None]
  - WEIGHT INCREASED [None]
  - WITHDRAWAL SYNDROME [None]
